FAERS Safety Report 7414317-X (Version None)
Quarter: 2011Q2

REPORT INFORMATION
  Report Type: 
  Country: None (occurrence: None)
  Receive Date: 20110411
  Receipt Date: 20110411
  Transmission Date: 20111010
  Serious: Yes (Other)
  Sender: FDA-Public Use
  Company Number: None

PATIENT
  Age: 48 Year
  Sex: Female
  Weight: 49.8957 kg

DRUGS (1)
  1. ABREVA [Suspect]
     Indication: ORAL HERPES
     Dosage: 1 PUMP PRESS 3 TIMES DAILY PO
     Route: 048
     Dates: start: 20110322, end: 20110325

REACTIONS (1)
  - DRUG HYPERSENSITIVITY [None]
